FAERS Safety Report 7605565-4 (Version None)
Quarter: 2011Q3

REPORT INFORMATION
  Report Type: 
  Country: None (occurrence: None)
  Receive Date: 20110713
  Receipt Date: 20110630
  Transmission Date: 20111222
  Serious: Yes (Other)
  Sender: FDA-Public Use
  Company Number: US-BAYER-200840204NA

PATIENT
  Age: 73 Year
  Sex: Male
  Weight: 113 kg

DRUGS (25)
  1. LASIX [Concomitant]
     Dosage: 40 MG,LONG TERM
     Route: 048
  2. LIPITOR [Concomitant]
     Dosage: 20 MG, QD
     Route: 048
  3. INDERAL [Concomitant]
     Dosage: 80 MG, UNK
     Route: 048
  4. HEPARIN [Concomitant]
     Dosage: UNK
     Route: 042
     Dates: start: 20031014, end: 20031014
  5. MILRINONE [Concomitant]
     Dosage: UNK
     Route: 042
     Dates: start: 20031014, end: 20031014
  6. SOLU-MEDROL [Concomitant]
     Dosage: 25 MG, UNK
     Route: 042
     Dates: start: 20031014, end: 20031014
  7. TRIDIL [Concomitant]
     Dosage: UNK
     Route: 042
     Dates: start: 20031014, end: 20031014
  8. PLAVIX [Concomitant]
     Dosage: 75 MG, QD
     Route: 048
  9. TOPROL-XL [Concomitant]
     Dosage: 50 MG, QD
     Route: 048
  10. TRASYLOL [Suspect]
     Dosage: 200ML, LOADING DOSE
     Route: 042
     Dates: start: 20031014, end: 20031014
  11. AMIODARONE HCL [Concomitant]
     Dosage: 200 MG, UNK
     Route: 048
  12. PROTAMINE SULFATE [Concomitant]
     Dosage: 400 MG, UNK
     Route: 042
     Dates: start: 20031014, end: 20031014
  13. VERSED [Concomitant]
     Dosage: 7 MG, UNK
     Route: 042
     Dates: start: 20031014, end: 20031014
  14. RED BLOOD CELLS [Concomitant]
     Dosage: 7 U, UNK
     Route: 042
  15. TRASYLOL [Suspect]
     Indication: CORONARY ARTERY BYPASS
     Dosage: 1 ML, ONCE, TEST DOSE
     Route: 042
     Dates: start: 20031014, end: 20031014
  16. SULINDAC [Concomitant]
     Dosage: 150 MG, UNK
     Route: 048
  17. ACCUPRIL [Concomitant]
     Dosage: 20 MG, UNK
     Route: 048
  18. ANCEF [Concomitant]
     Dosage: 1.5 G, UNK
     Route: 042
     Dates: start: 20031014
  19. FENTANYL-100 [Concomitant]
     Dosage: UNK
     Route: 042
     Dates: start: 20031014
  20. ACETYLSALICYLIC ACID SRT [Concomitant]
     Dosage: 81 MG, QD
     Route: 048
  21. COUMADIN [Concomitant]
     Route: 048
  22. TRASYLOL [Suspect]
     Dosage: 50ML/HR INFUSION
     Route: 042
     Dates: start: 20031014, end: 20031014
  23. ALLOPURINOL [Concomitant]
     Dosage: 300 MG, UNK
     Route: 048
  24. DOPAMINE HCL [Concomitant]
     Dosage: UNK
     Route: 042
     Dates: start: 20031014, end: 20031014
  25. HYDRALAZINE HCL [Concomitant]
     Dosage: 25 MG, UNK
     Route: 048

REACTIONS (12)
  - RENAL INJURY [None]
  - RENAL IMPAIRMENT [None]
  - PAIN [None]
  - FEAR [None]
  - ANHEDONIA [None]
  - TOE AMPUTATION [None]
  - EMOTIONAL DISTRESS [None]
  - INJURY [None]
  - RENAL FAILURE [None]
  - STRESS [None]
  - ANXIETY [None]
  - UNEVALUABLE EVENT [None]
